FAERS Safety Report 15509012 (Version 1)
Quarter: 2018Q4

REPORT INFORMATION
  Report Type: Spontaneous
  Country: US (occurrence: US)
  Receive Date: 20181016
  Receipt Date: 20181016
  Transmission Date: 20190205
  Serious: Yes (Hospitalization)
  Sender: FDA-Public Use
  Company Number: None

PATIENT
  Age: 63 Year
  Sex: Female

DRUGS (16)
  1. IBRANCE [Suspect]
     Active Substance: PALBOCICLIB
     Indication: MALIGNANT NIPPLE NEOPLASM
     Dosage: ?          OTHER FREQUENCY:DAILY X21D, 7D OFF;?
     Route: 048
     Dates: start: 20180425
  2. NITROFURANTOIN. [Concomitant]
     Active Substance: NITROFURANTOIN
  3. LOSARTAN. [Concomitant]
     Active Substance: LOSARTAN
  4. LIDOCAINE/PRILOCAINE CREAM [Concomitant]
  5. CARISOPRODOL. [Concomitant]
     Active Substance: CARISOPRODOL
  6. LOSARTAN. [Concomitant]
     Active Substance: LOSARTAN
  7. VIRTUSSIN AC SOLUTION [Concomitant]
  8. METHYLPREDNISONE [Concomitant]
     Active Substance: METHYLPREDNISOLONE
  9. FASLODEX [Concomitant]
     Active Substance: FULVESTRANT
  10. GABAPENTIN. [Concomitant]
     Active Substance: GABAPENTIN
  11. LORAZEPAM. [Concomitant]
     Active Substance: LORAZEPAM
  12. ALPRAZOLAM. [Concomitant]
     Active Substance: ALPRAZOLAM
  13. CLOBETASOL [Concomitant]
     Active Substance: CLOBETASOL
  14. VITAMIN D3 [Concomitant]
     Active Substance: CHOLECALCIFEROL
  15. MELOXICAM. [Concomitant]
     Active Substance: MELOXICAM
  16. FLUCONAZOLE. [Concomitant]
     Active Substance: FLUCONAZOLE

REACTIONS (4)
  - Lung disorder [None]
  - Pneumonia [None]
  - Fibromyalgia [None]
  - Systemic lupus erythematosus [None]

NARRATIVE: CASE EVENT DATE: 20180901
